FAERS Safety Report 9738920 (Version 1)
Quarter: 2013Q4

REPORT INFORMATION
  Report Type: Spontaneous
  Country: US (occurrence: US)
  Receive Date: 20131209
  Receipt Date: 20131209
  Transmission Date: 20140711
  Serious: Yes (Hospitalization)
  Sender: FDA-Public Use
  Company Number: US-BAYER-2013-147709

PATIENT
  Age: 32 Year
  Sex: Female

DRUGS (1)
  1. MIRENA [Suspect]
     Dosage: 20 MCG/24HR, CONT
     Route: 015
     Dates: start: 201008, end: 20131125

REACTIONS (10)
  - Brain oedema [None]
  - Menorrhagia [None]
  - Weight increased [None]
  - Panic attack [None]
  - Hypoaesthesia [None]
  - Vision blurred [None]
  - Amenorrhoea [None]
  - Abdominal pain upper [None]
  - Nausea [None]
  - Feeling hot [None]
